FAERS Safety Report 5054982-8 (Version None)
Quarter: 2006Q3

REPORT INFORMATION
  Report Type: 
  Country: None (occurrence: None)
  Receive Date: 20060719
  Receipt Date: 20060215
  Transmission Date: 20061208
  Serious: Yes (Death, Life-Threatening, Hospitalization)
  Sender: FDA-Public Use
  Company Number: JP-JPN-A200600647

PATIENT
  Age: 50 Year
  Sex: Male
  Weight: 90 kg

DRUGS (11)
  1. ZEFIX [Suspect]
     Indication: HEPATITIS B
     Dosage: 100MG PER DAY
     Route: 048
     Dates: start: 20040927, end: 20051221
  2. GASTER [Suspect]
     Indication: GASTRIC ULCER
     Dosage: 20MG TWICE PER DAY
     Route: 042
     Dates: start: 20051122, end: 20051124
  3. HEPSERA [Concomitant]
     Route: 048
  4. OMEPRAL [Concomitant]
     Indication: GASTRIC ULCER
     Dosage: 40MG PER DAY
     Route: 042
     Dates: start: 20051201, end: 20051205
  5. GLUCOSE [Concomitant]
     Dosage: 1000ML PER DAY
     Route: 042
     Dates: start: 20051206, end: 20051221
  6. SANDIMMUNE [Concomitant]
     Indication: IMMUNOSUPPRESSANT DRUG THERAPY
     Route: 042
     Dates: start: 20051204, end: 20051221
  7. HUMULIN 70/30 [Concomitant]
     Indication: DIABETES MELLITUS
     Route: 042
     Dates: start: 20051206, end: 20051221
  8. ZANTAC [Concomitant]
     Indication: GASTRIC ULCER
     Dosage: 200MG PER DAY
     Route: 042
     Dates: start: 20051206, end: 20051221
  9. PENTCILLIN [Concomitant]
     Indication: BRONCHITIS
     Dosage: 2G PER DAY
     Route: 042
     Dates: start: 20051206, end: 20051218
  10. FLUMARIN [Concomitant]
     Indication: BRONCHITIS
     Dosage: 2G PER DAY
     Route: 042
     Dates: start: 20051219, end: 20051221
  11. GLYCYRRHIZIN [Concomitant]
     Dates: start: 20051119

REACTIONS (20)
  - ALANINE AMINOTRANSFERASE DECREASED [None]
  - ANOREXIA [None]
  - ASPARTATE AMINOTRANSFERASE DECREASED [None]
  - ASTHENIA [None]
  - BLOOD BILIRUBIN INCREASED [None]
  - BLOOD PRESSURE DECREASED [None]
  - DEPRESSED LEVEL OF CONSCIOUSNESS [None]
  - HALLUCINATION [None]
  - HEART RATE DECREASED [None]
  - HEPATIC ENCEPHALOPATHY [None]
  - HEPATITIS B [None]
  - JAUNDICE [None]
  - PLATELET COUNT DECREASED [None]
  - PLEURAL EFFUSION [None]
  - PULMONARY OEDEMA [None]
  - RASH [None]
  - RENAL IMPAIRMENT [None]
  - RESPIRATORY FAILURE [None]
  - THIRST [None]
  - URINE OUTPUT DECREASED [None]
